FAERS Safety Report 7397284-7 (Version None)
Quarter: 2011Q2

REPORT INFORMATION
  Report Type: 
  Country: None (occurrence: None)
  Receive Date: 20110406
  Receipt Date: 20110331
  Transmission Date: 20111010
  Serious: No
  Sender: FDA-Public Use
  Company Number: US-PFIZER INC-2011043925

PATIENT
  Sex: Female
  Weight: 54.422 kg

DRUGS (6)
  1. KLONOPIN [Concomitant]
     Dosage: UNK
  2. SERTRALINE [Concomitant]
     Indication: BIPOLAR DISORDER
     Dosage: UNK
  3. OXCARBAZEPINE [Concomitant]
     Dosage: UNK
  4. FLUOXETINE [Concomitant]
     Dosage: UNK
  5. DETROL LA [Suspect]
     Indication: HYPERTONIC BLADDER
     Dosage: 4 MG, 1X/DAY
     Route: 048
     Dates: start: 20110212, end: 20110225
  6. TRAMADOL [Concomitant]
     Dosage: UNK

REACTIONS (1)
  - DRUG INEFFECTIVE [None]
